FAERS Safety Report 5243594-9 (Version None)
Quarter: 2007Q1

REPORT INFORMATION
  Report Type: 
  Country: None (occurrence: None)
  Receive Date: 20070220
  Receipt Date: 20070220
  Transmission Date: 20070707
  Serious: Yes (Other)
  Sender: FDA-Public Use
  Company Number: None

PATIENT
  Age: 50 Year
  Sex: Female
  Weight: 56.6996 kg

DRUGS (3)
  1. PROPOXYPHENE-N 100 W/APAP 650 TA  QUALITEST [Suspect]
     Indication: FIBROMYALGIA
     Dosage: ONE TAB  4 PER DAY PO
     Route: 048
  2. PROPOXYPHENE-N 100 W/APAP 650 TA  QUALITEST [Suspect]
     Indication: INTERVERTEBRAL DISC PROTRUSION
     Dosage: ONE TAB  4 PER DAY PO
     Route: 048
  3. DARVOCET [Suspect]
     Indication: FIBROMYALGIA
     Dosage: ONE TAB  4 PER DAY PO
     Route: 048

REACTIONS (1)
  - DRUG EFFECT DECREASED [None]
